FAERS Safety Report 21104329 (Version 2)
Quarter: 2022Q3

REPORT INFORMATION
  Report Type: Spontaneous
  Country: US (occurrence: US)
  Receive Date: 20220720
  Receipt Date: 20220802
  Transmission Date: 20221027
  Serious: Yes (Other)
  Sender: FDA-Public Use
  Company Number: US-PFIZER INC-202200889800

PATIENT
  Age: 37 Year
  Sex: Male

DRUGS (2)
  1. BENEFIX [Suspect]
     Active Substance: COAGULATION FACTOR IX RECOMBINANT HUMAN\ISOPROPYL ALCOHOL
     Indication: Haemorrhoidal haemorrhage
     Dosage: 3000 UNIT|INFUSE ~ 6000 UNITS (+/-10% ) INTRAVENOUSLY AS NEEDED EVERY 24 HRS FOR BREAKTHRU BLEEDING)
     Route: 042
  2. BENEFIX [Suspect]
     Active Substance: COAGULATION FACTOR IX RECOMBINANT HUMAN\ISOPROPYL ALCOHOL
     Indication: Factor IX deficiency
     Dosage: 3000 UNIT|INFUSE ~ 6000 UNITS (+/-10% ) INTRAVENOUSLY AS NEEDED EVERY 24 HRS FOR BREAKTHRU BLEEDING)
     Route: 042

REACTIONS (3)
  - Toe operation [Unknown]
  - Haemorrhage [Unknown]
  - Skin laceration [Unknown]
